FAERS Safety Report 5797709-4 (Version None)
Quarter: 2008Q3

REPORT INFORMATION
  Report Type: 
  Country: None (occurrence: None)
  Receive Date: 20080702
  Receipt Date: 20080627
  Transmission Date: 20090109
  Serious: Yes (Life-Threatening, Hospitalization)
  Sender: FDA-Public Use
  Company Number: US-BRISTOL-MYERS SQUIBB COMPANY-14244818

PATIENT
  Age: 50 Year
  Sex: Male

DRUGS (13)
  1. CARBOPLATIN [Suspect]
     Indication: HEAD AND NECK CANCER
  2. PACLITAXEL [Suspect]
     Indication: HEAD AND NECK CANCER
  3. PANITUMUMAB [Suspect]
     Indication: HEAD AND NECK CANCER
     Route: 042
     Dates: start: 20061220, end: 20070131
  4. RADIATION THERAPY [Suspect]
     Indication: HEAD AND NECK CANCER
  5. LORAZEPAM [Concomitant]
     Route: 065
     Dates: start: 20070130
  6. PROCHLORPERAZINE [Concomitant]
     Route: 065
     Dates: start: 20070213
  7. SENNA [Concomitant]
     Route: 065
     Dates: start: 20061226
  8. LIDOCAINE [Concomitant]
     Route: 065
     Dates: start: 20070226
  9. MAALOX [Concomitant]
     Route: 065
     Dates: start: 20070225
  10. DIPHENHYDRAMINE HCL [Concomitant]
     Route: 065
     Dates: start: 20070226
  11. OXYCODONE HCL [Concomitant]
     Route: 065
     Dates: start: 20070109
  12. FENTANYL [Concomitant]
     Route: 065
     Dates: start: 20070213
  13. BACITRACIN [Concomitant]
     Route: 061
     Dates: start: 20070213

REACTIONS (3)
  - DEEP VEIN THROMBOSIS [None]
  - EMBOLIC STROKE [None]
  - MULTI-ORGAN FAILURE [None]
